FAERS Safety Report 24108526 (Version 1)
Quarter: 2024Q3

REPORT INFORMATION
  Report Type: Other
  Country: BE (occurrence: BE)
  Receive Date: 20240718
  Receipt Date: 20240718
  Transmission Date: 20241017
  Serious: Yes (Other)
  Sender: ASPEN
  Company Number: BE-ROCHE-1643077

PATIENT

DRUGS (39)
  1. DEXAMETHASONE [Suspect]
     Active Substance: DEXAMETHASONE
     Indication: Product used for unknown indication
     Dosage: UNK
     Route: 065
  2. SULFAMETHOXAZOLE\TRIMETHOPRIM [Suspect]
     Active Substance: SULFAMETHOXAZOLE\TRIMETHOPRIM
     Indication: Product used for unknown indication
     Dosage: UNK
     Route: 065
  3. INTERFERON BETA-1B [Suspect]
     Active Substance: INTERFERON BETA-1B
     Indication: Product used for unknown indication
     Dosage: UNK
     Route: 065
  4. VINBLASTINE [Suspect]
     Active Substance: VINBLASTINE
     Indication: Neoplasm malignant
     Dosage: UNK
     Route: 065
  5. METOCLOPRAMIDE [Suspect]
     Active Substance: METOCLOPRAMIDE
     Indication: Product used for unknown indication
     Dosage: UNK
     Route: 065
  6. TROPISETRON [Suspect]
     Active Substance: TROPISETRON
     Indication: Product used for unknown indication
     Dosage: UNK
     Route: 065
  7. ERYTHROMYCIN [Suspect]
     Active Substance: ERYTHROMYCIN
     Indication: Product used for unknown indication
     Dosage: UNK
     Route: 065
  8. PACLITAXEL [Suspect]
     Active Substance: PACLITAXEL
     Indication: Neoplasm malignant
     Dosage: UNK
     Route: 065
  9. ONDANSETRON [Suspect]
     Active Substance: ONDANSETRON
     Indication: Product used for unknown indication
     Dosage: UNK
     Route: 065
  10. NITROFURANTOIN [Suspect]
     Active Substance: NITROFURANTOIN
     Indication: Product used for unknown indication
     Dosage: UNK
     Route: 065
  11. EPIRUBICIN [Suspect]
     Active Substance: EPIRUBICIN
     Indication: Neoplasm malignant
     Dosage: UNK
     Route: 065
  12. TEMOZOLOMIDE [Suspect]
     Active Substance: TEMOZOLOMIDE
     Indication: Neoplasm malignant
     Dosage: UNK
     Route: 065
  13. IFOSFAMIDE [Suspect]
     Active Substance: IFOSFAMIDE
     Indication: Neoplasm malignant
     Dosage: UNK
     Route: 065
  14. VINCRISTINE [Suspect]
     Active Substance: VINCRISTINE
     Indication: Neoplasm malignant
     Dosage: UNK
     Route: 065
  15. FLUOROURACIL [Suspect]
     Active Substance: FLUOROURACIL
     Indication: Neoplasm malignant
     Dosage: UNK
     Route: 065
  16. MITOXANTRONE [Suspect]
     Active Substance: MITOXANTRONE HYDROCHLORIDE
     Indication: Neoplasm malignant
     Dosage: UNK
     Route: 065
  17. TRASTUZUMAB [Suspect]
     Active Substance: TRASTUZUMAB
     Indication: Neoplasm malignant
     Dosage: UNK
     Route: 065
  18. DOXORUBICIN [Suspect]
     Active Substance: DOXORUBICIN
     Indication: Neoplasm malignant
     Dosage: UNK
     Route: 065
  19. BLEOMYCIN [Suspect]
     Active Substance: BLEOMYCIN SULFATE
     Indication: Neoplasm malignant
     Dosage: UNK
     Route: 065
  20. DACARBAZINE [Suspect]
     Active Substance: DACARBAZINE
     Indication: Neoplasm malignant
     Dosage: UNK
     Route: 065
  21. DAUNORUBICIN [Suspect]
     Active Substance: DAUNORUBICIN
     Indication: Neoplasm malignant
     Dosage: UNK
     Route: 065
  22. IDARUBICIN [Suspect]
     Active Substance: IDARUBICIN
     Indication: Product used for unknown indication
     Dosage: UNK
     Route: 065
  23. AMOXICILLIN [Suspect]
     Active Substance: AMOXICILLIN
     Indication: Product used for unknown indication
     Dosage: UNK
     Route: 065
  24. CYCLOPHOSPHAMIDE [Suspect]
     Active Substance: CYCLOPHOSPHAMIDE
     Indication: Neoplasm malignant
     Dosage: UNK
     Route: 065
  25. APREPITANT [Suspect]
     Active Substance: APREPITANT
     Indication: Product used for unknown indication
     Dosage: UNK
     Route: 065
  26. DOCETAXEL [Suspect]
     Active Substance: DOCETAXEL\DOCETAXEL ANHYDROUS
     Indication: Neoplasm malignant
     Dosage: UNK
     Route: 065
  27. METHYLPREDNISOLONE [Suspect]
     Active Substance: METHYLPREDNISOLONE
     Indication: Product used for unknown indication
     Dosage: UNK
     Route: 065
  28. RITUXIMAB [Suspect]
     Active Substance: RITUXIMAB
     Indication: Neoplasm malignant
     Dosage: UNK
     Route: 065
  29. CARBOPLATIN [Suspect]
     Active Substance: CARBOPLATIN
     Indication: Neoplasm malignant
     Dosage: UNK
     Route: 065
  30. CEFUROXIME [Suspect]
     Active Substance: CEFUROXIME
     Indication: Product used for unknown indication
     Dosage: UNK
     Route: 065
  31. CEFTAZIDIME [Suspect]
     Active Substance: CEFTAZIDIME
     Indication: Product used for unknown indication
     Dosage: UNK
     Route: 065
  32. PREDNISOLONE [Suspect]
     Active Substance: PREDNISOLONE
     Indication: Neoplasm malignant
     Dosage: UNK
     Route: 065
  33. CYTARABINE [Suspect]
     Active Substance: CYTARABINE
     Indication: Neoplasm malignant
     Dosage: UNK
     Route: 065
  34. CEFTRIAXONE [Suspect]
     Active Substance: CEFTRIAXONE\CEFTRIAXONE SODIUM
     Indication: Product used for unknown indication
     Dosage: UNK
     Route: 065
  35. ETOPOSIDE [Suspect]
     Active Substance: ETOPOSIDE
     Indication: Neoplasm malignant
     Dosage: UNK
     Route: 065
  36. PIPERACILLIN AND TAZOBACTAM [Suspect]
     Active Substance: PIPERACILLIN SODIUM\TAZOBACTAM SODIUM
     Indication: Product used for unknown indication
     Dosage: UNK
     Route: 065
  37. CEFEPIME [Suspect]
     Active Substance: CEFEPIME HYDROCHLORIDE
     Indication: Product used for unknown indication
     Dosage: UNK
     Route: 065
  38. METHOTREXATE [Suspect]
     Active Substance: METHOTREXATE
     Indication: Neoplasm malignant
     Dosage: UNK
     Route: 065
  39. ACETAMINOPHEN [Suspect]
     Active Substance: ACETAMINOPHEN
     Indication: Product used for unknown indication
     Dosage: UNK
     Route: 065

REACTIONS (2)
  - Maternal exposure during pregnancy [Unknown]
  - Premature delivery [Unknown]
